FAERS Safety Report 21879061 (Version 4)
Quarter: 2025Q1

REPORT INFORMATION
  Report Type: Spontaneous
  Country: US (occurrence: US)
  Receive Date: 20230118
  Receipt Date: 20250320
  Transmission Date: 20250408
  Serious: No
  Sender: PFIZER
  Company Number: US-PFIZER INC-PV202300008453

PATIENT
  Age: 71 Year
  Sex: Female
  Weight: 70.295 kg

DRUGS (1)
  1. XELJANZ [Suspect]
     Active Substance: TOFACITINIB CITRATE

REACTIONS (3)
  - Cough [Not Recovered/Not Resolved]
  - Dry skin [Unknown]
  - Skin atrophy [Unknown]

NARRATIVE: CASE EVENT DATE: 20221201
